FAERS Safety Report 6300911-6 (Version None)
Quarter: 2009Q3

REPORT INFORMATION
  Report Type: 
  Country: None (occurrence: None)
  Receive Date: 20090807
  Receipt Date: 20090723
  Transmission Date: 20100115
  Serious: Yes (Hospitalization)
  Sender: FDA-Public Use
  Company Number: US-JNJFOC-20090304206

PATIENT
  Age: 55 Year
  Sex: Male
  Weight: 73.03 kg

DRUGS (15)
  1. DARUNAVIR [Suspect]
     Indication: HIV INFECTION
     Route: 048
  2. ETRAVIRINE [Suspect]
     Indication: HIV INFECTION
     Route: 048
  3. MARAVIROC [Suspect]
     Indication: HIV INFECTION
     Route: 048
  4. RALTEGRAVIR [Suspect]
     Indication: HIV INFECTION
     Route: 048
  5. RITONAVIR [Suspect]
     Indication: HIV INFECTION
     Route: 048
  6. IMODIUM [Concomitant]
     Indication: DIARRHOEA
     Route: 048
  7. AZITHROMYCIN [Concomitant]
     Indication: ANTIFUNGAL PROPHYLAXIS
     Route: 048
  8. FLUCONAZOLE [Concomitant]
     Indication: FUNGAL INFECTION
     Route: 048
  9. ATENOLOL [Concomitant]
     Indication: HYPERTENSION
     Route: 048
  10. ATOVAQUONE [Concomitant]
  11. GEMFIBROZIL [Concomitant]
     Indication: HYPERLIPIDAEMIA
     Route: 048
  12. GABAPENTIN [Concomitant]
     Indication: NEUROPATHY PERIPHERAL
     Route: 048
  13. HYDROXYZINE [Concomitant]
     Indication: PRURITUS
     Route: 048
  14. RANITIDINE [Concomitant]
     Indication: GASTROOESOPHAGEAL REFLUX DISEASE
     Route: 048
  15. ZOLPIDEM [Concomitant]
     Indication: INSOMNIA
     Route: 048

REACTIONS (1)
  - EPISTAXIS [None]
